FAERS Safety Report 4751500-6 (Version None)
Quarter: 2005Q3

REPORT INFORMATION
  Report Type: 
  Country: None (occurrence: None)
  Receive Date: 20050822
  Receipt Date: 20050809
  Transmission Date: 20060218
  Serious: Yes (Other)
  Sender: FDA-Public Use
  Company Number: 2005105471

PATIENT
  Sex: Male
  Weight: 99 kg

DRUGS (1)
  1. LYRICA [Suspect]
     Indication: NEUROPATHIC PAIN
     Dosage: 600 MG (300 MG, 2 IN 1 D), ORAL
     Route: 048

REACTIONS (6)
  - AMNESIA [None]
  - ANGER [None]
  - COORDINATION ABNORMAL [None]
  - DYSARTHRIA [None]
  - IRRITABILITY [None]
  - MOOD SWINGS [None]
